FAERS Safety Report 9636049 (Version 3)
Quarter: 2014Q2

REPORT INFORMATION
  Report Type: Spontaneous
  Country: US (occurrence: US)
  Receive Date: 20131021
  Receipt Date: 20140417
  Transmission Date: 20141212
  Serious: Yes (Other)
  Sender: FDA-Public Use
  Company Number: US-UCBSA-100194

PATIENT
  Age: 29 Year
  Sex: Female
  Weight: 67.5 kg

DRUGS (4)
  1. KEPPRA [Suspect]
     Indication: CONVULSION
     Dosage: DOSE: UNKNOWN, STRENGTH: 1000 MG
     Route: 048
  2. KEPPRA [Suspect]
     Indication: CONVULSION
     Dosage: REDUCED DOSE, STRENGTH: 1000 MG
     Route: 048
     Dates: start: 20131018
  3. LAMICTAL [Concomitant]
     Indication: CONVULSION
     Route: 048
     Dates: start: 1999
  4. DEPAKOTE [Concomitant]
     Indication: CONVULSION
     Route: 048
     Dates: start: 1996, end: 20130524

REACTIONS (2)
  - Convulsion [Recovered/Resolved]
  - Pregnancy [Recovered/Resolved]
